FAERS Safety Report 17080233 (Version 1)
Quarter: 2019Q4

REPORT INFORMATION
  Report Type: Spontaneous
  Country: ES (occurrence: ES)
  Receive Date: 20191127
  Receipt Date: 20191127
  Transmission Date: 20200122
  Serious: Yes (Other)
  Sender: FDA-Public Use
  Company Number: ES-TEVA-2019-ES-1141475

PATIENT
  Age: 69 Year
  Sex: Female

DRUGS (2)
  1. SIMVASTATINA (1023A) [Concomitant]
     Active Substance: SIMVASTATIN
     Indication: DYSLIPIDAEMIA
     Dosage: 20 MG 1 DAYS
     Route: 048
     Dates: start: 20180720
  2. CIPROFLOXACINO (2049A) [Suspect]
     Active Substance: CIPROFLOXACIN
     Indication: URINARY TRACT INFECTION
     Dosage: 500 MG 12 HOURS
     Route: 048
     Dates: start: 20190919, end: 20190925

REACTIONS (1)
  - Anterograde amnesia [Recovered/Resolved]

NARRATIVE: CASE EVENT DATE: 20190920
